FAERS Safety Report 11870002 (Version 3)
Quarter: 2016Q1

REPORT INFORMATION
  Report Type: Report from Study
  Country: US (occurrence: US)
  Receive Date: 20151228
  Receipt Date: 20160114
  Transmission Date: 20160526
  Serious: Yes (Other)
  Sender: FDA-Public Use
  Company Number: US-AMGEN-USASL2015135942

PATIENT
  Age: 64 Year
  Sex: Male

DRUGS (1)
  1. ENBREL [Suspect]
     Active Substance: ETANERCEPT
     Indication: ANKYLOSING SPONDYLITIS
     Dosage: 50 MG, QWK
     Route: 058
     Dates: start: 20151201

REACTIONS (7)
  - Blood urine present [Recovering/Resolving]
  - Injection site pruritus [Unknown]
  - Injection site erythema [Unknown]
  - Pyrexia [Not Recovered/Not Resolved]
  - Kidney infection [Recovering/Resolving]
  - Paraesthesia [Not Recovered/Not Resolved]
  - Injection site urticaria [Unknown]

NARRATIVE: CASE EVENT DATE: 201512
